FAERS Safety Report 24056184 (Version 3)
Quarter: 2024Q3

REPORT INFORMATION
  Report Type: Spontaneous
  Country: US (occurrence: US)
  Receive Date: 20240705
  Receipt Date: 20240805
  Transmission Date: 20241016
  Serious: Yes (Other)
  Sender: LANTHEUS MEDICAL IMAGING
  Company Number: US-LANTHEUS-LMI-2024-00811

PATIENT
  Age: 85 Year
  Sex: Female
  Weight: 59 kg

DRUGS (4)
  1. DEFINITY [Suspect]
     Active Substance: PERFLUTREN
     Indication: Echocardiogram
     Dosage: 2 MILLILITRE (VIAL OF DEFINITY PREPARED IN A LITTLE BIT OVER 8 ML OF SALINE)
     Route: 042
     Dates: start: 20240626, end: 20240626
  2. AMLODIPINE [Concomitant]
     Active Substance: AMLODIPINE BESYLATE
     Indication: Product used for unknown indication
     Dosage: UNK
  3. TOPROL XL [Concomitant]
     Active Substance: METOPROLOL SUCCINATE
     Indication: Echocardiogram
     Dosage: UNK; XL
  4. SIMVASTATIN [Concomitant]
     Active Substance: SIMVASTATIN
     Indication: Product used for unknown indication
     Dosage: UNK

REACTIONS (5)
  - Pulmonary oedema [Unknown]
  - Dyspnoea [Unknown]
  - Cough [Unknown]
  - Oxygen saturation decreased [Unknown]
  - Sinus tachycardia [Unknown]

NARRATIVE: CASE EVENT DATE: 20240626
